FAERS Safety Report 8515877-8 (Version None)
Quarter: 2012Q3

REPORT INFORMATION
  Report Type: 
  Country: None (occurrence: None)
  Receive Date: 20120705
  Receipt Date: 20120626
  Transmission Date: 20120928
  Serious: Yes (Other)
  Sender: FDA-Public Use
  Company Number: DSA_58226_2012

PATIENT
  Age: 69 Year
  Sex: Male

DRUGS (6)
  1. AMOXICILLIN [Concomitant]
  2. DICLOFENAC [Concomitant]
  3. ANTIEPILEPTICS [Concomitant]
  4. METRONIDAZOLE [Suspect]
     Indication: INFECTION
     Dosage: (400 THREE TIMES DAILY)
     Dates: start: 20111117, end: 20111118
  5. ACETAMINOPHEN AND CODEINE PHOSPHATE [Concomitant]
  6. VALPROIC ACID [Concomitant]

REACTIONS (1)
  - EPILEPSY [None]
